FAERS Safety Report 5175198-0 (Version None)
Quarter: 2006Q4

REPORT INFORMATION
  Report Type: 
  Country: None (occurrence: None)
  Receive Date: 20061206
  Receipt Date: 20061124
  Transmission Date: 20070319
  Serious: Yes (Death)
  Sender: FDA-Public Use
  Company Number: 2006-02188

PATIENT
  Age: 66 Year
  Sex: Female
  Weight: 72 kg

DRUGS (12)
  1. VELCADE [Suspect]
     Indication: MULTIPLE MYELOMA
     Dosage: 1.00 MG/M2, INTRAVENOUS
     Route: 042
     Dates: start: 20060703, end: 20060727
  2. DEXAMETHASONE [Concomitant]
  3. VITAMIN B COMPLEX CAP [Concomitant]
  4. PYRIDOXINE HCL [Concomitant]
  5. VITAMIN BPC [Concomitant]
  6. FOLIC ACID [Concomitant]
  7. ACYCLOVIR [Concomitant]
  8. PANTOPRAZOLE SODIUM [Concomitant]
  9. SULFAMETHOXAZOLE + TRIMETHOPRIM [Concomitant]
  10. MOVICOL (SODIUM BICARBONATE, SODIUM CHLORIDE, MACROGOL, POTASSIUM CHLO [Concomitant]
  11. CALCITROL (ERGOCALCIFEROL, RETINOL, CALCIUM CARBONATE) [Concomitant]
  12. FUROSEMIDE [Concomitant]

REACTIONS (2)
  - DISEASE PROGRESSION [None]
  - DRUG INEFFECTIVE [None]
